FAERS Safety Report 13913050 (Version 1)
Quarter: 2017Q3

REPORT INFORMATION
  Report Type: Spontaneous
  Country: US (occurrence: US)
  Receive Date: 20170828
  Receipt Date: 20170828
  Transmission Date: 20171127
  Serious: No
  Sender: FDA-Public Use
  Company Number: US-PRINSTON PHARMACEUTICAL INC.-2017PRN00330

PATIENT
  Sex: Female

DRUGS (1)
  1. PAROXETINE. [Suspect]
     Active Substance: PAROXETINE
     Indication: FIBROMYALGIA

REACTIONS (3)
  - Abdominal discomfort [Unknown]
  - Somnolence [Unknown]
  - Drug ineffective for unapproved indication [Unknown]
